FAERS Safety Report 8609565-7 (Version None)
Quarter: 2012Q3

REPORT INFORMATION
  Report Type: 
  Country: None (occurrence: None)
  Receive Date: 20120821
  Receipt Date: 20120815
  Transmission Date: 20120928
  Serious: Yes (Other)
  Sender: FDA-Public Use
  Company Number: US-ALLERGAN-1211285US

PATIENT
  Sex: Female

DRUGS (2)
  1. BOTOX COSMETIC [Suspect]
     Indication: SKIN WRINKLING
     Dosage: 24 UNITS, GLABELLA AND FOREHEAD SINGLE
     Route: 030
     Dates: start: 20120808, end: 20120808
  2. BOTOX COSMETIC [Suspect]

REACTIONS (4)
  - HYPOAESTHESIA [None]
  - DIZZINESS [None]
  - DRY MOUTH [None]
  - THROAT TIGHTNESS [None]
